FAERS Safety Report 13296265 (Version 12)
Quarter: 2017Q4

REPORT INFORMATION
  Report Type: Report from Study
  Country: US (occurrence: US)
  Receive Date: 20170304
  Receipt Date: 20171216
  Transmission Date: 20180320
  Serious: Yes (Death, Hospitalization, Other)
  Sender: FDA-Public Use
  Company Number: US-B.I. PHARMACEUTICALS,INC./RIDGEFIELD-2016-BI-072689

PATIENT
  Sex: Female

DRUGS (5)
  1. ADEMPAS [Concomitant]
     Active Substance: RIOCIGUAT
     Indication: PRODUCT USED FOR UNKNOWN INDICATION
     Route: 065
  2. OFEV [Suspect]
     Active Substance: NINTEDANIB
     Indication: PULMONARY ARTERIAL HYPERTENSION
     Route: 048
     Dates: start: 20161028
  3. UPTRAVI [Concomitant]
     Active Substance: SELEXIPAG
     Indication: PRODUCT USED FOR UNKNOWN INDICATION
     Route: 065
  4. ORENITRAM [Concomitant]
     Active Substance: TREPROSTINIL
     Indication: PRODUCT USED FOR UNKNOWN INDICATION
     Route: 065
  5. OFEV [Suspect]
     Active Substance: NINTEDANIB
     Indication: IDIOPATHIC PULMONARY FIBROSIS
     Route: 048
     Dates: start: 20161021

REACTIONS (21)
  - Blood potassium decreased [Unknown]
  - Palpitations [Unknown]
  - Vomiting [Unknown]
  - Headache [Unknown]
  - Productive cough [Unknown]
  - Epistaxis [Unknown]
  - Dyspnoea exertional [Unknown]
  - Flushing [Unknown]
  - Malaise [Unknown]
  - Peripheral swelling [Unknown]
  - Sepsis [Fatal]
  - Fluid retention [Unknown]
  - Oedema [Unknown]
  - Pleural effusion [Unknown]
  - Large intestine perforation [Fatal]
  - Dyspnoea [Unknown]
  - Dehydration [Unknown]
  - Gastric disorder [Unknown]
  - Joint swelling [Unknown]
  - Respiratory tract infection [Unknown]
  - Fatigue [Unknown]
